FAERS Safety Report 17489010 (Version 1)
Quarter: 2020Q1

REPORT INFORMATION
  Report Type: Spontaneous
  Country: US (occurrence: US)
  Receive Date: 20200221
  Receipt Date: 20200221
  Transmission Date: 20200409
  Serious: No
  Sender: FDA-Public Use
  Company Number: None

PATIENT
  Age: 88 Year
  Sex: Male

DRUGS (4)
  1. DIOVAN [Concomitant]
     Active Substance: VALSARTAN
  2. TAMOXIFEN [Concomitant]
     Active Substance: TAMOXIFEN
  3. IBRANCE [Suspect]
     Active Substance: PALBOCICLIB
     Indication: BREAST CANCER
     Route: 048
     Dates: start: 20191020
  4. METFORMIN DIOVAN [Concomitant]

REACTIONS (2)
  - Neutropenia [None]
  - Off label use [None]

NARRATIVE: CASE EVENT DATE: 20200212
